FAERS Safety Report 7417092-8 (Version None)
Quarter: 2011Q2

REPORT INFORMATION
  Report Type: 
  Country: None (occurrence: None)
  Receive Date: 20110415
  Receipt Date: 20110401
  Transmission Date: 20111010
  Serious: Yes (Hospitalization, Other)
  Sender: FDA-Public Use
  Company Number: GB-RANBAXY-2011R1-42746

PATIENT
  Age: 36 Year
  Sex: Female

DRUGS (8)
  1. LACOSAMIDE [Suspect]
     Indication: EPILEPSY
     Dosage: 100 MG, UNK
     Route: 065
  2. LACOSAMIDE [Suspect]
     Route: 065
  3. OXCARBAZEPINE [Suspect]
     Indication: EPILEPSY
     Dosage: 1200 MG, QD
     Route: 065
  4. OXCARBAZEPINE [Suspect]
     Dosage: 300 MG, 1 DAYS.
     Route: 065
  5. LACOSAMIDE [Suspect]
     Dosage: 200 MG, UNK
     Route: 065
  6. PHENYTOIN [Suspect]
     Indication: EPILEPSY
     Dosage: 150 MG, UNK
     Route: 065
  7. OXCARBAZEPINE [Suspect]
     Dosage: 1350 MG, UNK
     Route: 065
  8. TOPIRAMATE [Suspect]
     Indication: EPILEPSY
     Dosage: 250 MG, UNK
     Route: 048

REACTIONS (5)
  - NEUROTOXICITY [None]
  - DRUG INTERACTION [None]
  - DIPLOPIA [None]
  - BALANCE DISORDER [None]
  - CONVULSION [None]
